FAERS Safety Report 9573159 (Version 1)
Quarter: 2013Q4

REPORT INFORMATION
  Report Type: Spontaneous
  Country: US (occurrence: US)
  Receive Date: 20131001
  Receipt Date: 20131001
  Transmission Date: 20140711
  Serious: No
  Sender: FDA-Public Use
  Company Number: US-PURDUE-USA-2012-0082450

PATIENT
  Sex: Male

DRUGS (1)
  1. BUTRANS [Suspect]
     Indication: PRODUCT USED FOR UNKNOWN INDICATION
     Dosage: 10 MCG, Q1H
     Route: 062
     Dates: start: 20110216, end: 20110217

REACTIONS (3)
  - Confusional state [Recovered/Resolved]
  - Nausea [Recovered/Resolved]
  - Sedation [Recovered/Resolved]
